FAERS Safety Report 9718779 (Version 2)
Quarter: 2013Q4

REPORT INFORMATION
  Report Type: Spontaneous
  Country: ES (occurrence: ES)
  Receive Date: 20131127
  Receipt Date: 20131127
  Transmission Date: 20140711
  Serious: Yes (Disabling, Other)
  Sender: FDA-Public Use
  Company Number: ES-ACTAVIS-2013-20101

PATIENT
  Age: 84 Year
  Sex: Male

DRUGS (2)
  1. BICALUTAMIDE (UNKNOWN) [Suspect]
     Indication: PROSTATE CANCER METASTATIC
     Dosage: UNK
     Route: 065
  2. CYPROTERONE (UNKNOWN) [Suspect]
     Indication: PROSTATE CANCER METASTATIC
     Dosage: UNK
     Route: 065

REACTIONS (2)
  - Hyperhidrosis [Unknown]
  - Quality of life decreased [Unknown]
